FAERS Safety Report 21346765 (Version 1)
Quarter: 2022Q3

REPORT INFORMATION
  Report Type: Spontaneous
  Country: US (occurrence: US)
  Receive Date: 20220918
  Receipt Date: 20220918
  Transmission Date: 20221026
  Serious: Yes (Hospitalization, Disabling, Other)
  Sender: FDA-Public Use
  Company Number: US-SA-SAC20220915001031

PATIENT
  Age: 63 Year
  Sex: Female

DRUGS (1)
  1. AUBAGIO [Suspect]
     Active Substance: TERIFLUNOMIDE
     Indication: Multiple sclerosis
     Dosage: UNK
     Dates: start: 20130128, end: 20200401

REACTIONS (13)
  - Chronic kidney disease [Unknown]
  - Macular rupture [Unknown]
  - Wheelchair user [Unknown]
  - Retinal injury [Unknown]
  - Pneumonia [Unknown]
  - Multiple sclerosis [Unknown]
  - COVID-19 [Unknown]
  - Chills [Unknown]
  - Intervertebral disc degeneration [Unknown]
  - Sleep apnoea syndrome [Unknown]
  - Upper respiratory tract infection bacterial [Unknown]
  - Cataract operation [Unknown]
  - Diarrhoea [Unknown]

NARRATIVE: CASE EVENT DATE: 20200727
